FAERS Safety Report 9646445 (Version 1)
Quarter: 2013Q4

REPORT INFORMATION
  Report Type: Spontaneous
  Country: IE (occurrence: None)
  Receive Date: 20131024
  Receipt Date: 20131024
  Transmission Date: 20140711
  Serious: Yes (Life-Threatening, Hospitalization)
  Sender: FDA-Public Use
  Company Number: AMAG201300176

PATIENT
  Age: 81 Year
  Sex: Female

DRUGS (1)
  1. RIENSO [Suspect]
     Indication: IRON DEFICIENCY
     Dosage: 510 MG, SINGLE, INTRAVENOUS
     Route: 042
     Dates: start: 20130930, end: 20130930

REACTIONS (4)
  - Unresponsive to stimuli [None]
  - Atrial fibrillation [None]
  - Blood pressure decreased [None]
  - Heart rate increased [None]
